FAERS Safety Report 9374829 (Version 6)
Quarter: 2013Q4

REPORT INFORMATION
  Report Type: Spontaneous
  Country: DE (occurrence: DE)
  Receive Date: 20130628
  Receipt Date: 20131009
  Transmission Date: 20140711
  Serious: Yes (Hospitalization)
  Sender: FDA-Public Use
  Company Number: DE-AMGEN-DEUSP2013045263

PATIENT
  Sex: Male

DRUGS (22)
  1. PEGFILGRASTIM [Suspect]
     Indication: B-CELL LYMPHOMA
     Dosage: 6 MG, ONCE PER CYCLE
     Route: 058
     Dates: start: 20130609
  2. PEGFILGRASTIM [Suspect]
     Dosage: 6 MG, 1 IN 1
     Route: 065
     Dates: start: 20130623, end: 20130623
  3. RITUXIMAB [Suspect]
     Indication: B-CELL LYMPHOMA
     Dosage: 375 MG, 1 IN 1 D
     Route: 042
     Dates: start: 20130619, end: 20130619
  4. PREDNISOLONE [Suspect]
     Indication: B-CELL LYMPHOMA
     Dosage: 100 MG, 1 IN 1 D
     Route: 048
     Dates: start: 20130619, end: 20130627
  5. VINCRISTINE [Suspect]
     Indication: B-CELL LYMPHOMA
     Dosage: 2 MG/M2, 1 PER CYCLE
     Route: 042
     Dates: start: 20130606
  6. VINCRISTINE [Suspect]
     Dosage: 2 MG/M2, 1 IN 1 D
     Route: 042
     Dates: start: 20130620, end: 20130620
  7. CYCLOPHOSPHAMIDE [Suspect]
     Indication: B-CELL LYMPHOMA
     Dosage: 750 MG/M2, 1 DAY PER CYCLE
     Route: 042
     Dates: start: 20130606
  8. CYCLOPHOSPHAMIDE [Suspect]
     Dosage: 750 MG/M2, 1 IN 1 D
     Route: 042
     Dates: start: 20130620, end: 20130620
  9. DOXORUBICIN [Suspect]
     Indication: B-CELL LYMPHOMA
     Dosage: 50 MG/M2, 1 DAY PER CYCLE
     Route: 042
     Dates: start: 20130606
  10. DOXORUBICIN [Suspect]
     Dosage: 50 MG/M2, 1 IN 1 D
     Route: 042
     Dates: start: 20130620, end: 20130620
  11. LERCANIDIPINE HYDROCHLORIDE [Concomitant]
     Indication: HYPERTENSION
     Dosage: 10 MG, 1 IN 1 D
     Route: 048
  12. INSULIN GLARGINE [Concomitant]
     Indication: DIABETES MELLITUS
     Dosage: 23 IU, 1 IN 1 D
     Route: 058
  13. INSULIN LISPRO [Concomitant]
     Indication: DIABETES MELLITUS
     Dosage: 10-24-20 IE
     Route: 058
  14. FORMOTEROL FUMARATE [Concomitant]
     Indication: PNEUMONIA
     Dosage: 1-0-1 HUB
     Route: 055
  15. SALBUTAMOL SULFATE [Concomitant]
     Indication: PNEUMONIA
     Dosage: UNK UNK, AS NECESSARY
     Route: 055
  16. TIMOLOL MALEATE [Concomitant]
     Indication: GLAUCOMA
     Dosage: UNK UNK, BID
     Route: 061
  17. PANTOPRAZOLE [Concomitant]
     Indication: PROPHYLAXIS AGAINST GASTROINTESTINAL ULCER
     Dosage: 40 MG, 1 IN 1 D
     Route: 048
  18. MAGALDRATE [Concomitant]
     Indication: PROPHYLAXIS AGAINST GASTROINTESTINAL ULCER
     Dosage: UNK UNK, AS NECESSARY
     Route: 048
  19. KALIUMCHLORID [Concomitant]
     Indication: HYPOKALAEMIA
     Dosage: 3-3-3
     Route: 048
  20. METAMIZOLE SODIUM [Concomitant]
     Indication: PAIN
     Dosage: 1-1-1-1
     Route: 048
  21. HYDROMORPHONE HYDROCHLORIDE [Concomitant]
     Indication: PAIN
     Dosage: 2.6 MG, IF NEEDED UPTO 4X/DAY
     Route: 048
  22. CIPROFLOXACIN [Concomitant]
     Indication: DIARRHOEA
     Dosage: 500 MG, 2 IN 1 D
     Route: 048
     Dates: start: 20130701

REACTIONS (2)
  - Fatigue [Recovered/Resolved]
  - Neutropenic infection [Recovered/Resolved with Sequelae]
